FAERS Safety Report 21028949 (Version 3)
Quarter: 2023Q1

REPORT INFORMATION
  Report Type: Spontaneous
  Country: IE (occurrence: IE)
  Receive Date: 20220630
  Receipt Date: 20230123
  Transmission Date: 20230417
  Serious: No
  Sender: FDA-Public Use
  Company Number: IE-SANOFI-01153464

PATIENT
  Sex: Female

DRUGS (1)
  1. ENOXAPARIN SODIUM [Suspect]
     Active Substance: ENOXAPARIN SODIUM
     Dosage: 400 MG

REACTIONS (4)
  - Foreign body in skin or subcutaneous tissue [Unknown]
  - Injury associated with device [Unknown]
  - Device malfunction [Unknown]
  - Exposure during pregnancy [Unknown]
